FAERS Safety Report 18264168 (Version 1)
Quarter: 2020Q3

REPORT INFORMATION
  Report Type: Spontaneous
  Country: GB (occurrence: GB)
  Receive Date: 20200914
  Receipt Date: 20200914
  Transmission Date: 20201103
  Serious: Yes (Other)
  Sender: FDA-Public Use
  Company Number: GB-TEVA-2002B-00949

PATIENT
  Age: 67 Year
  Sex: Female

DRUGS (5)
  1. ATORVASTATIN [Suspect]
     Active Substance: ATORVASTATIN
     Indication: HYPOCHOLESTEROLAEMIA
     Route: 065
  2. FLUVASTATIN [Suspect]
     Active Substance: FLUVASTATIN SODIUM
     Indication: HYPOCHOLESTEROLAEMIA
     Route: 065
  3. SIMVASTATIN. [Suspect]
     Active Substance: SIMVASTATIN
     Indication: HYPOCHOLESTEROLAEMIA
     Route: 065
  4. BEZAFIBRATE (UNKNOWN) [Suspect]
     Active Substance: BEZAFIBRATE
     Indication: HYPOCHOLESTEROLAEMIA
     Route: 065
  5. ATORVASTATIN [Suspect]
     Active Substance: ATORVASTATIN
     Indication: HYPOCHOLESTEROLAEMIA
     Route: 065

REACTIONS (4)
  - Muscular weakness [Recovered/Resolved]
  - Eyelid ptosis [Recovered/Resolved]
  - Strabismus [Recovered/Resolved]
  - Ocular myasthenia [Recovered/Resolved with Sequelae]
